FAERS Safety Report 4923929-4 (Version None)
Quarter: 2006Q1

REPORT INFORMATION
  Report Type: 
  Country: None (occurrence: None)
  Receive Date: 20060227
  Receipt Date: 20051031
  Transmission Date: 20060701
  Serious: Yes (Hospitalization, Other)
  Sender: FDA-Public Use
  Company Number: US-MERCK-0511USA00251

PATIENT
  Age: 52 Year
  Sex: Female

DRUGS (13)
  1. TOPROL-XL [Concomitant]
     Route: 048
  2. LIPITOR [Concomitant]
     Route: 048
  3. VERAPAMIL [Concomitant]
     Route: 048
  4. GLUCOPHAGE [Concomitant]
     Route: 048
  5. CAPTOPRIL MSD [Concomitant]
     Route: 048
  6. ACIPHEX [Concomitant]
     Route: 048
  7. PAXIL [Concomitant]
     Route: 048
  8. CLONAZEPAM [Concomitant]
     Route: 065
  9. PRILOSEC [Concomitant]
     Route: 048
  10. SEROQUEL [Concomitant]
     Route: 048
  11. HUMULIN [Concomitant]
     Route: 065
  12. HUMULIN [Concomitant]
     Route: 065
  13. VIOXX [Suspect]
     Route: 048
     Dates: start: 20020501, end: 20030929

REACTIONS (34)
  - ABDOMINAL PAIN [None]
  - ABDOMINAL PAIN UPPER [None]
  - ACUTE CORONARY SYNDROME [None]
  - ARTERIOSCLEROSIS CORONARY ARTERY [None]
  - ASTHMA [None]
  - ATRIAL FIBRILLATION [None]
  - BODY TEMPERATURE INCREASED [None]
  - BRADYCARDIA [None]
  - CARDIAC FAILURE CONGESTIVE [None]
  - CARDIOMEGALY [None]
  - CATHETER SITE HAEMORRHAGE [None]
  - CHEST PAIN [None]
  - CORONARY ARTERY DISEASE [None]
  - CORONARY ARTERY STENOSIS [None]
  - DEHYDRATION [None]
  - DYSPNOEA [None]
  - EFFUSION [None]
  - FLANK PAIN [None]
  - GRANULOMA [None]
  - HAEMANGIOMA [None]
  - HEPATIC CIRRHOSIS [None]
  - HOSPITALISATION [None]
  - HYPERKALAEMIA [None]
  - HYPERTENSION [None]
  - HYPOGLYCAEMIA [None]
  - HYPOMAGNESAEMIA [None]
  - HYPOTHYROIDISM [None]
  - MYOCARDIAL INFARCTION [None]
  - PERICARDIAL EFFUSION [None]
  - RENAL FAILURE [None]
  - SPLEEN DISORDER [None]
  - SWELLING [None]
  - SYNCOPE VASOVAGAL [None]
  - VENTRICULAR HYPERTROPHY [None]
